FAERS Safety Report 9016978 (Version 3)
Quarter: 2013Q2

REPORT INFORMATION
  Report Type: Report from Study
  Country: JP (occurrence: JP)
  Receive Date: 20130117
  Receipt Date: 20130408
  Transmission Date: 20140414
  Serious: Yes (Hospitalization)
  Sender: FDA-Public Use
  Company Number: JP-AMGEN-JPNCT2013002830

PATIENT
  Age: 76 Year
  Sex: Female
  Weight: 46 kg

DRUGS (18)
  1. DARBEPOETIN ALFA [Suspect]
     Indication: NEPHROGENIC ANAEMIA
     Dosage: 30 MUG, QD
     Route: 058
     Dates: start: 20101109, end: 20101109
  2. DARBEPOETIN ALFA [Suspect]
     Dosage: 30 MUG, QD
     Route: 058
     Dates: start: 20101216, end: 20101216
  3. DARBEPOETIN ALFA [Suspect]
     Dosage: 30 MUG, QD
     Route: 058
     Dates: start: 20110118, end: 20110118
  4. DARBEPOETIN ALFA [Suspect]
     Dosage: 30 MUG, Q4WK
     Route: 058
     Dates: start: 20110506, end: 20110603
  5. DARBEPOETIN ALFA [Suspect]
     Dosage: 30 MUG, QD
     Route: 058
     Dates: start: 20110706, end: 20110706
  6. DARBEPOETIN ALFA [Suspect]
     Dosage: 30 MUG, Q4WK
     Route: 058
     Dates: start: 20110810, end: 20110909
  7. DARBEPOETIN ALFA [Suspect]
     Dosage: 30 MUG, Q4WK
     Route: 058
     Dates: start: 20111011, end: 20111108
  8. DARBEPOETIN ALFA [Suspect]
     Dosage: 30 MUG, QD
     Route: 058
     Dates: start: 20111202, end: 20111202
  9. DARBEPOETIN ALFA [Suspect]
     Dosage: 30 MUG, QD
     Route: 058
     Dates: start: 20120114, end: 20120114
  10. DARBEPOETIN ALFA [Suspect]
     Dosage: 30 MUG, Q4WK
     Route: 058
     Dates: start: 20120217, end: 20120414
  11. DARBEPOETIN ALFA [Suspect]
     Dosage: 30 MUG, Q3WK
     Route: 058
     Dates: start: 20120529, end: 20120619
  12. DARBEPOETIN ALFA [Suspect]
     Dosage: 30 MUG, QD
     Route: 058
     Dates: start: 20120714, end: 20120714
  13. DARBEPOETIN ALFA [Suspect]
     Dosage: 30 MUG, QD
     Route: 058
     Dates: start: 20120808, end: 20120808
  14. DARBEPOETIN ALFA [Suspect]
     Dosage: 30 MUG, Q3WK
     Route: 058
     Dates: start: 20120910, end: 20121003
  15. NU-LOTAN [Concomitant]
     Indication: NEPHROSCLEROSIS
     Dosage: UNK
     Route: 048
  16. ARTIST [Concomitant]
     Indication: NEPHROSCLEROSIS
     Dosage: UNK
     Route: 048
  17. VASOLAN [Concomitant]
     Indication: NEPHROSCLEROSIS
     Dosage: UNK
     Route: 048
  18. LIVALO [Concomitant]
     Indication: NEPHROSCLEROSIS
     Dosage: UNK
     Route: 048

REACTIONS (4)
  - Metastases to liver [Recovered/Resolved]
  - Metastases to lymph nodes [Recovered/Resolved]
  - Gallbladder cancer [Recovered/Resolved]
  - Iron deficiency anaemia [Recovering/Resolving]
